FAERS Safety Report 19029440 (Version 1)
Quarter: 2021Q1

REPORT INFORMATION
  Report Type: Spontaneous
  Country: US (occurrence: US)
  Receive Date: 20210317
  Receipt Date: 20210317
  Transmission Date: 20210420
  Serious: No
  Sender: FDA-Public Use
  Company Number: None

PATIENT
  Sex: Female

DRUGS (1)
  1. SILIQ [Suspect]
     Active Substance: BRODALUMAB
     Indication: PSORIASIS
     Dosage: ?          OTHER STRENGTH:210MG/1.5M;?
     Route: 058
     Dates: start: 20210212

REACTIONS (5)
  - Drug hypersensitivity [None]
  - Cough [None]
  - Flushing [None]
  - Dyspnoea [None]
  - Swelling [None]
